FAERS Safety Report 9837601 (Version 1)
Quarter: 2013Q4

REPORT INFORMATION
  Report Type: Spontaneous
  Country: US (occurrence: None)
  Receive Date: 20131127
  Receipt Date: 20131127
  Transmission Date: 20140711
  Serious: No
  Sender: FDA-Public Use
  Company Number: 223837

PATIENT
  Age: 76 Year
  Sex: Male

DRUGS (1)
  1. PICATO [Suspect]
     Indication: PRECANCEROUS SKIN LESION
     Dosage: 1 IN 1 D SCALP
     Dates: start: 20130828, end: 20130830

REACTIONS (2)
  - Application site pruritus [None]
  - Application site exfoliation [None]
